FAERS Safety Report 13312469 (Version 1)
Quarter: 2017Q1

REPORT INFORMATION
  Report Type: Spontaneous
  Country: JP (occurrence: JP)
  Receive Date: 20170309
  Receipt Date: 20170309
  Transmission Date: 20170428
  Serious: Yes (Other)
  Sender: FDA-Public Use
  Company Number: JP-SA-2017SA035684

PATIENT
  Age: 66 Year
  Sex: Male

DRUGS (3)
  1. EYEVINAL [Concomitant]
     Indication: CONJUNCTIVITIS
     Route: 047
     Dates: start: 20160206
  2. DELLEGRA [Suspect]
     Active Substance: FEXOFENADINE HYDROCHLORIDE\PSEUDOEPHEDRINE HYDROCHLORIDE
     Indication: RHINITIS ALLERGIC
     Route: 048
     Dates: start: 20170128, end: 20170218
  3. EYEVINAL [Concomitant]
     Indication: RHINITIS ALLERGIC
     Route: 047
     Dates: start: 20160206

REACTIONS (2)
  - Overdose [Unknown]
  - Urinary retention [Recovered/Resolved]

NARRATIVE: CASE EVENT DATE: 20170209
